FAERS Safety Report 5752535-7 (Version None)
Quarter: 2008Q2

REPORT INFORMATION
  Report Type: 
  Country: None (occurrence: None)
  Receive Date: 20080529
  Receipt Date: 20080521
  Transmission Date: 20081010
  Serious: Yes (Other)
  Sender: FDA-Public Use
  Company Number: PHNU2008DE01852

PATIENT
  Sex: Female

DRUGS (4)
  1. FEMARA [Suspect]
     Indication: BREAST CANCER
     Route: 048
     Dates: start: 20040101
  2. FLECAINIDE ACETATE [Concomitant]
     Indication: ARRHYTHMIA
  3. METOPROLOL TARTRATE [Concomitant]
     Indication: ARRHYTHMIA
  4. MARCUMAR [Concomitant]
     Indication: ANTICOAGULANT THERAPY
     Dates: start: 20071101, end: 20080301

REACTIONS (11)
  - ALOPECIA [None]
  - BONE PAIN [None]
  - CARDIAC PACEMAKER INSERTION [None]
  - CONSTIPATION [None]
  - FATIGUE [None]
  - HAEMORRHOID OPERATION [None]
  - HOT FLUSH [None]
  - LYMPHOEDEMA [None]
  - MUCOSAL DRYNESS [None]
  - MYALGIA [None]
  - SICK SINUS SYNDROME [None]
